FAERS Safety Report 5755694-5 (Version None)
Quarter: 2008Q2

REPORT INFORMATION
  Report Type: 
  Country: None (occurrence: None)
  Receive Date: 20080528
  Receipt Date: 20080520
  Transmission Date: 20081010
  Serious: Yes (Hospitalization, Disabling, Other)
  Sender: FDA-Public Use
  Company Number: 2008SP008981

PATIENT
  Age: 55 Year
  Sex: Female
  Weight: 63 kg

DRUGS (3)
  1. PEG-INTRON [Suspect]
     Indication: HEPATITIS C
     Dosage: ; SC
     Route: 058
     Dates: start: 20080218, end: 20080505
  2. REBETOL [Suspect]
     Indication: HEPATITIS C
     Dates: start: 20080218, end: 20080424
  3. TELAPREVIR (INVESTIGATIONAL DRUG) [Suspect]
     Indication: HEPATITIS C
     Dates: start: 20080218, end: 20080505

REACTIONS (3)
  - ANAEMIA [None]
  - DRUG TOLERANCE DECREASED [None]
  - OEDEMA PERIPHERAL [None]
